FAERS Safety Report 4873182-5 (Version None)
Quarter: 2005Q4

REPORT INFORMATION
  Report Type: 
  Country: None (occurrence: None)
  Receive Date: 20051201
  Receipt Date: 20050818
  Transmission Date: 20060501
  Serious: No
  Sender: FDA-Public Use
  Company Number: 2005PV001276

PATIENT
  Age: 54 Year
  Sex: Female
  Weight: 90.2658 kg

DRUGS (8)
  1. BYETTA [Suspect]
     Indication: DIABETES MELLITUS NON-INSULIN-DEPENDENT
     Dosage: 5 MCG; BID; SC
     Route: 058
     Dates: start: 20050817
  2. ACTOS [Concomitant]
  3. GLYBURIDE AND METFORMIN HCL [Concomitant]
  4. NEXIUM [Concomitant]
  5. LIPITOR [Concomitant]
  6. BENICAR HCT [Concomitant]
  7. ASPIRIN [Concomitant]
  8. LEXAPRO [Concomitant]

REACTIONS (5)
  - BLOOD GLUCOSE DECREASED [None]
  - EARLY SATIETY [None]
  - ERUCTATION [None]
  - FEELING JITTERY [None]
  - NAUSEA [None]
